FAERS Safety Report 4777111-4 (Version None)
Quarter: 2005Q3

REPORT INFORMATION
  Report Type: 
  Country: None (occurrence: None)
  Receive Date: 20050923
  Receipt Date: 20050921
  Transmission Date: 20060218
  Serious: Yes (Death)
  Sender: FDA-Public Use
  Company Number: PHNR2005AU01443

PATIENT
  Sex: 0

DRUGS (4)
  1. AMINOPHYLLINE [Concomitant]
  2. ALBUTEROL SULFATE HFA [Concomitant]
  3. CORTICOSTEROIDS [Concomitant]
  4. KETOTIFEN HYDROGEN FUMARATE [Suspect]
     Dates: start: 19810328

REACTIONS (1)
  - BRONCHOSPASM [None]
